FAERS Safety Report 19080390 (Version 10)
Quarter: 2024Q2

REPORT INFORMATION
  Report Type: Report from Study
  Country: PT (occurrence: PT)
  Receive Date: 20210401
  Receipt Date: 20240621
  Transmission Date: 20240716
  Serious: Yes (Hospitalization, Other)
  Sender: FDA-Public Use
  Company Number: PT-AUROBINDO-AUR-APL-2021-011587

PATIENT
  Age: 41 Year
  Sex: Female

DRUGS (12)
  1. TENOFOVIR [Suspect]
     Active Substance: TENOFOVIR
     Indication: Antiretroviral therapy
     Dosage: 245 MILLIGRAM, ONCE A DAY (245 MILLIGRAM, QD)
     Route: 048
     Dates: start: 2019
  2. TENOFOVIR [Suspect]
     Active Substance: TENOFOVIR
     Indication: HIV infection
  3. TENOFOVIR [Suspect]
     Active Substance: TENOFOVIR
     Indication: Hepatitis B
  4. DESMOPRESSIN [Suspect]
     Active Substance: DESMOPRESSIN
     Indication: Diabetes insipidus
     Dosage: 0.6 MILLIGRAM, TWO TIMES A DAY
     Route: 048
  5. DESMOPRESSIN [Suspect]
     Active Substance: DESMOPRESSIN
     Indication: Hypernatraemia
     Dosage: 0.6 MILLIGRAM, ONCE A DAY
     Route: 048
  6. EMTRICITABINE [Suspect]
     Active Substance: EMTRICITABINE
     Indication: Antiretroviral therapy
     Dosage: 200 MILLIGRAM, ONCE A DAY (200 MILLIGRAM, QD)
     Route: 048
     Dates: start: 2019
  7. EMTRICITABINE [Suspect]
     Active Substance: EMTRICITABINE
     Indication: HIV infection
  8. EMTRICITABINE [Suspect]
     Active Substance: EMTRICITABINE
     Indication: Hepatitis B
  9. DEXTROSE\SODIUM CHLORIDE [Suspect]
     Active Substance: DEXTROSE\SODIUM CHLORIDE
     Indication: Diabetes with hyperosmolarity
     Dosage: UNK
     Route: 065
  10. TIVICAY [Suspect]
     Active Substance: DOLUTEGRAVIR SODIUM
     Indication: Antiretroviral therapy
     Dosage: 50 MILLIGRAM, ONCE A DAY (50 MILLIGRAM, QD)
     Route: 048
  11. TIVICAY [Suspect]
     Active Substance: DOLUTEGRAVIR SODIUM
     Indication: HIV infection
  12. TIVICAY [Suspect]
     Active Substance: DOLUTEGRAVIR SODIUM
     Indication: Hepatitis B

REACTIONS (19)
  - Nephrogenic diabetes insipidus [Recovered/Resolved]
  - Renal impairment [Recovered/Resolved]
  - Hyperosmolar state [Recovered/Resolved]
  - Diabetes insipidus [Recovered/Resolved]
  - Hypernatraemia [Recovered/Resolved]
  - Gestational diabetes [Recovered/Resolved]
  - Foetal growth restriction [Not Recovered/Not Resolved]
  - Oligohydramnios [Recovered/Resolved]
  - Dysmetria [Recovered/Resolved]
  - Cerebellar ataxia [Recovered/Resolved]
  - Communication disorder [Recovered/Resolved]
  - Malaise [Recovered/Resolved]
  - Maternal exposure during pregnancy [Recovered/Resolved]
  - Diabetes with hyperosmolarity [Recovered/Resolved]
  - Abortion induced [Recovered/Resolved]
  - Exposure during pregnancy [Recovered/Resolved]
  - Ataxia [Recovered/Resolved]
  - Anaemia [Recovered/Resolved]
  - Treatment noncompliance [Unknown]
